FAERS Safety Report 24890722 (Version 1)
Quarter: 2025Q1

REPORT INFORMATION
  Report Type: Spontaneous
  Country: US (occurrence: US)
  Receive Date: 20250127
  Receipt Date: 20250127
  Transmission Date: 20250409
  Serious: No
  Sender: BRISTOL-MYERS SQUIBB COMPANY
  Company Number: US-BRISTOL-MYERS SQUIBB COMPANY-2025-008409

PATIENT
  Age: 79 Year
  Sex: Male
  Weight: 96.16 kg

DRUGS (1)
  1. ELIQUIS [Suspect]
     Active Substance: APIXABAN
     Indication: Product used for unknown indication

REACTIONS (3)
  - Injection site cyst [Not Recovered/Not Resolved]
  - Weight decreased [Unknown]
  - Abdominal mass [Recovering/Resolving]

NARRATIVE: CASE EVENT DATE: 20240401
